FAERS Safety Report 13839305 (Version 1)
Quarter: 2017Q3

REPORT INFORMATION
  Report Type: Spontaneous
  Country: US (occurrence: US)
  Receive Date: 20170805
  Receipt Date: 20170805
  Transmission Date: 20171127
  Serious: Yes (Death)
  Sender: FDA-Public Use
  Company Number: None

PATIENT
  Age: 69 Year
  Sex: Female

DRUGS (24)
  1. CHLORHEXADINE [Concomitant]
     Active Substance: CHLORHEXIDINE
  2. METHYLPREDNISOLONE. [Concomitant]
     Active Substance: METHYLPREDNISOLONE
  3. METHYLPREDNISOLONE. [Suspect]
     Active Substance: METHYLPREDNISOLONE
     Indication: GRAFT VERSUS HOST DISEASE
     Dosage: 40MG/30MG EVERY 12 HOURS IV
     Route: 042
     Dates: start: 20170206
  4. INSULIN ASPART [Concomitant]
     Active Substance: INSULIN ASPART
  5. ONDANSETRON [Concomitant]
     Active Substance: ONDANSETRON
  6. CASPOFUNGIN [Concomitant]
     Active Substance: CASPOFUNGIN
  7. FAMOTIDINE. [Concomitant]
     Active Substance: FAMOTIDINE
  8. METRONIDAZOLE. [Concomitant]
     Active Substance: METRONIDAZOLE
  9. LANSOPRAZOLE. [Concomitant]
     Active Substance: LANSOPRAZOLE
  10. LEVOTHYROXINE. [Concomitant]
     Active Substance: LEVOTHYROXINE
  11. VANCOMYCIN [Concomitant]
     Active Substance: VANCOMYCIN
  12. ACYCLOVIR. [Concomitant]
     Active Substance: ACYCLOVIR
  13. ATROPINE-DIPHENOXYLATE [Concomitant]
  14. SIMETHICONE (DIMETHICONE) [Concomitant]
     Active Substance: DIMETHICONE
  15. TRAMADOL. [Concomitant]
     Active Substance: TRAMADOL
  16. VORICONAZOLE. [Concomitant]
     Active Substance: VORICONAZOLE
  17. CITRIC ACID SODIUM CITRATE [Concomitant]
  18. HYDROMORPHONE [Concomitant]
     Active Substance: HYDROMORPHONE
  19. LOPERAMIDE [Concomitant]
     Active Substance: LOPERAMIDE
  20. PROCHLORPERAZINE. [Concomitant]
     Active Substance: PROCHLORPERAZINE
  21. TACROLIMUS. [Concomitant]
     Active Substance: TACROLIMUS
  22. OCTREOTIDE. [Concomitant]
     Active Substance: OCTREOTIDE
  23. TRIAMCINOLONE ACETONIDE. [Concomitant]
     Active Substance: TRIAMCINOLONE ACETONIDE
  24. ZINC OXIDE/COD LIVER OIL [Concomitant]

REACTIONS (7)
  - Supraventricular tachycardia [None]
  - Pulseless electrical activity [None]
  - Citrobacter infection [None]
  - Diarrhoea [None]
  - Bacteraemia [None]
  - Graft versus host disease [None]
  - Hypovolaemia [None]

NARRATIVE: CASE EVENT DATE: 20170214
